FAERS Safety Report 4991098-0 (Version None)
Quarter: 2006Q2

REPORT INFORMATION
  Report Type: 
  Country: None (occurrence: None)
  Receive Date: 20060428
  Receipt Date: 20060417
  Transmission Date: 20061013
  Serious: Yes (Death)
  Sender: FDA-Public Use
  Company Number: 2006054682

PATIENT
  Sex: Male

DRUGS (1)
  1. CELEBREX [Suspect]
     Indication: PAIN
     Dosage: ORAL
     Route: 048

REACTIONS (9)
  - ANGIOPATHY [None]
  - ARTERIAL DISORDER [None]
  - CARDIOVASCULAR DISORDER [None]
  - CEREBRAL DISORDER [None]
  - CORONARY ARTERY DISEASE [None]
  - GASTROINTESTINAL DISORDER [None]
  - INJURY [None]
  - LUNG DISORDER [None]
  - RENAL DISORDER [None]
